FAERS Safety Report 9258949 (Version 2)
Quarter: 2013Q2

REPORT INFORMATION
  Report Type: Report from Study
  Country: GB (occurrence: GB)
  Receive Date: 20130426
  Receipt Date: 20130515
  Transmission Date: 20140414
  Serious: Yes (Hospitalization)
  Sender: FDA-Public Use
  Company Number: GB-GLAXOSMITHKLINE-B0887283A

PATIENT
  Age: 57 Year
  Sex: Male

DRUGS (1)
  1. PAZOPANIB [Suspect]
     Indication: HYPERTENSION
     Dosage: 800MG PER DAY
     Route: 048
     Dates: start: 20130308

REACTIONS (1)
  - Pharyngitis [Recovered/Resolved]
